FAERS Safety Report 16708201 (Version 1)
Quarter: 2019Q3

REPORT INFORMATION
  Report Type: Report from Study
  Country: None (occurrence: US)
  Receive Date: 20190815
  Receipt Date: 20190815
  Transmission Date: 20191004
  Serious: Yes (Other)
  Sender: FDA-Public Use
  Company Number: US-ABBVIE-19K-163-2879237-00

PATIENT
  Sex: Female
  Weight: 64.92 kg

DRUGS (4)
  1. BREO ELLIPTA [Concomitant]
     Active Substance: FLUTICASONE FUROATE\VILANTEROL TRIFENATATE
     Indication: ASTHMA
  2. HUMIRA [Suspect]
     Active Substance: ADALIMUMAB
     Indication: CROHN^S DISEASE
     Route: 058
  3. HUMIRA [Suspect]
     Active Substance: ADALIMUMAB
     Route: 058
     Dates: start: 201908
  4. HUMIRA [Suspect]
     Active Substance: ADALIMUMAB
     Route: 058
     Dates: start: 201808, end: 201907

REACTIONS (8)
  - Gastrointestinal infection [Recovered/Resolved]
  - Drug ineffective [Unknown]
  - Intestinal perforation [Recovered/Resolved]
  - Cataract [Recovering/Resolving]
  - Gastrointestinal pain [Recovered/Resolved]
  - Amnesia [Recovered/Resolved]
  - Visual impairment [Recovering/Resolving]
  - Hypertension [Recovering/Resolving]

NARRATIVE: CASE EVENT DATE: 2016
